FAERS Safety Report 5371704-1 (Version None)
Quarter: 2007Q2

REPORT INFORMATION
  Report Type: 
  Country: None (occurrence: None)
  Receive Date: 20070627
  Receipt Date: 20070626
  Transmission Date: 20071010
  Serious: Yes (Other)
  Sender: FDA-Public Use
  Company Number: US-BRISTOL-MYERS SQUIBB COMPANY-13826490

PATIENT
  Age: 68 Year
  Sex: Male

DRUGS (2)
  1. DEFINITY [Suspect]
     Indication: CHEST PAIN
     Route: 040
     Dates: start: 20070622, end: 20070622
  2. DOBUTAMINE HCL [Suspect]
     Indication: CHEST PAIN
     Route: 042
     Dates: start: 20070622, end: 20070622

REACTIONS (1)
  - CONVULSION [None]
